FAERS Safety Report 7784779-7 (Version None)
Quarter: 2011Q3

REPORT INFORMATION
  Report Type: 
  Country: None (occurrence: None)
  Receive Date: 20110928
  Receipt Date: 20110926
  Transmission Date: 20111222
  Serious: Yes (Death, Other)
  Sender: FDA-Public Use
  Company Number: US-PFIZER INC-2011184715

PATIENT
  Sex: Male

DRUGS (2)
  1. REVATIO [Suspect]
     Indication: PULMONARY HYPERTENSION
     Dosage: 20 MG, 3X/DAY
     Route: 048
     Dates: start: 20110101
  2. REVATIO [Suspect]
     Indication: INTERSTITIAL LUNG DISEASE

REACTIONS (2)
  - PULMONARY HYPERTENSION [None]
  - INTERSTITIAL LUNG DISEASE [None]
